FAERS Safety Report 9998391 (Version 1)
Quarter: 2014Q1

REPORT INFORMATION
  Report Type: Spontaneous
  Country: US (occurrence: US)
  Receive Date: 20140312
  Receipt Date: 20140312
  Transmission Date: 20141002
  Serious: No
  Sender: FDA-Public Use
  Company Number: US-BIOGENIDEC-2013BI036330

PATIENT
  Age: 53 Year
  Sex: Female

DRUGS (7)
  1. AVONEX [Suspect]
     Indication: MULTIPLE SCLEROSIS
     Route: 030
     Dates: start: 20120101
  2. AVONEX [Suspect]
     Indication: MULTIPLE SCLEROSIS
     Route: 030
     Dates: start: 20130422
  3. CELEBREX [Concomitant]
  4. CELEXA [Concomitant]
  5. LIPITOR [Concomitant]
  6. RITALIN [Concomitant]
  7. ZESTRIL [Concomitant]

REACTIONS (2)
  - Memory impairment [Not Recovered/Not Resolved]
  - Influenza like illness [Recovered/Resolved with Sequelae]
